FAERS Safety Report 9216423 (Version 1)
Quarter: 2013Q2

REPORT INFORMATION
  Report Type: Spontaneous
  Country: US (occurrence: US)
  Receive Date: 20130408
  Receipt Date: 20130408
  Transmission Date: 20140414
  Serious: Yes (Death, Hospitalization)
  Sender: FDA-Public Use
  Company Number: PHHY2013US033258

PATIENT
  Age: 63 Year
  Sex: Male

DRUGS (3)
  1. MYCOPHENOLATE [Suspect]
     Indication: PEMPHIGUS
     Dosage: UNK
     Route: 048
  2. PREDNISONE [Suspect]
     Indication: PEMPHIGUS
     Dosage: UNK
  3. PREDNISONE [Suspect]
     Dosage: 80 MG, UNK

REACTIONS (7)
  - Cardiac arrest [Fatal]
  - Thrombocytopenia [Fatal]
  - Delirium [Fatal]
  - Pneumonia [Fatal]
  - Pemphigus [Not Recovered/Not Resolved]
  - Superinfection bacterial [Not Recovered/Not Resolved]
  - Bacteraemia [Not Recovered/Not Resolved]
